FAERS Safety Report 6046194-6 (Version None)
Quarter: 2009Q1

REPORT INFORMATION
  Report Type: 
  Country: None (occurrence: None)
  Receive Date: 20090121
  Receipt Date: 20090121
  Transmission Date: 20090719
  Serious: Yes (Other)
  Sender: FDA-Public Use
  Company Number: None

PATIENT
  Age: 50 Year
  Sex: Female
  Weight: 84.369 kg

DRUGS (1)
  1. CYCLOBENZAPRINE [Suspect]
     Indication: MUSCLE SPASMS
     Dosage: 1 TIMES A DAY ONCE DAILY BUCCAL
     Route: 002
     Dates: start: 20080801, end: 20081231

REACTIONS (1)
  - EYE SWELLING [None]
